FAERS Safety Report 18479936 (Version 1)
Quarter: 2020Q4

REPORT INFORMATION
  Report Type: Spontaneous
  Country: US (occurrence: US)
  Receive Date: 20201108
  Receipt Date: 20201108
  Transmission Date: 20210114
  Serious: Yes (Hospitalization)
  Sender: FDA-Public Use
  Company Number: None

PATIENT
  Age: 72 Year
  Sex: Male
  Weight: 67.8 kg

DRUGS (10)
  1. SENNA 17.2MG [Concomitant]
  2. ACETAMINOPHEN 650MG [Concomitant]
  3. FAMOTIDINE 20MG [Concomitant]
     Active Substance: FAMOTIDINE
  4. ESCITALOPRAM 2.5MG [Concomitant]
  5. APIXABAN 5MG [Concomitant]
     Active Substance: APIXABAN
  6. ROMIDEPSIN. [Suspect]
     Active Substance: ROMIDEPSIN
     Indication: PERIPHERAL T-CELL LYMPHOMA UNSPECIFIED REFRACTORY
     Dates: start: 20201023
  7. VALACYCLOVIR [Concomitant]
     Active Substance: VALACYCLOVIR HYDROCHLORIDE
  8. LORAZEPAM 0.5-1MG [Concomitant]
  9. DEXAMETHASONE 10MG [Concomitant]
  10. ONDANSETRON 4MG [Concomitant]
     Active Substance: ONDANSETRON

REACTIONS (2)
  - Aspartate aminotransferase increased [None]
  - Alanine aminotransferase increased [None]

NARRATIVE: CASE EVENT DATE: 20201025
